APPROVED DRUG PRODUCT: PHENDIMETRAZINE TARTRATE
Active Ingredient: PHENDIMETRAZINE TARTRATE
Strength: 35MG
Dosage Form/Route: TABLET;ORAL
Application: A203600 | Product #001
Applicant: MPP PHARMA LLC
Approved: Dec 27, 2017 | RLD: No | RS: No | Type: DISCN